FAERS Safety Report 12315715 (Version 2)
Quarter: 2016Q2

REPORT INFORMATION
  Report Type: Spontaneous
  Country: IT (occurrence: IT)
  Receive Date: 20160428
  Receipt Date: 20160509
  Transmission Date: 20160815
  Serious: Yes (Other)
  Sender: FDA-Public Use
  Company Number: IT-TEVA-655386ACC

PATIENT
  Age: 64 Year
  Sex: Female
  Weight: 65 kg

DRUGS (2)
  1. SOVALDI [Suspect]
     Active Substance: SOFOSBUVIR
     Indication: HEPATITIS C
     Dosage: 1 DOSAGE FORMS DAILY;
     Route: 048
     Dates: start: 20160321, end: 20160415
  2. RIBAVIRIN. [Suspect]
     Active Substance: RIBAVIRIN
     Indication: HEPATITIS C
     Dosage: 4 DOSAGE FORMS DAILY;
     Route: 048
     Dates: start: 20160321, end: 20160413

REACTIONS (2)
  - Drug interaction [Unknown]
  - Anaemia [Unknown]

NARRATIVE: CASE EVENT DATE: 20160413
